FAERS Safety Report 7372209-9 (Version None)
Quarter: 2011Q1

REPORT INFORMATION
  Report Type: 
  Country: None (occurrence: None)
  Receive Date: 20110324
  Receipt Date: 20110315
  Transmission Date: 20110831
  Serious: Yes (Life-Threatening, Other)
  Sender: FDA-Public Use
  Company Number: JP-SANOFI-AVENTIS-2011SA010221

PATIENT
  Sex: Male
  Weight: 58 kg

DRUGS (14)
  1. ELPLAT [Suspect]
     Route: 041
     Dates: start: 20051201, end: 20051201
  2. FLUOROURACIL [Concomitant]
     Route: 040
     Dates: start: 20051118, end: 20051118
  3. CALCIUM LEVOFOLINATE [Suspect]
     Indication: COLON CANCER
     Route: 041
     Dates: start: 20050915, end: 20050915
  4. FLUOROURACIL [Concomitant]
     Route: 041
     Dates: start: 20051118, end: 20051119
  5. PRIMPERAN TAB [Concomitant]
     Indication: PREMEDICATION
     Route: 041
     Dates: start: 20050915, end: 20051215
  6. ELPLAT [Suspect]
     Route: 041
     Dates: start: 20051117, end: 20051117
  7. KYTRIL [Concomitant]
     Indication: PREMEDICATION
     Route: 041
     Dates: start: 20050915, end: 20051215
  8. DEXAMETHASONE [Concomitant]
     Indication: PREMEDICATION
     Route: 041
     Dates: start: 20050915, end: 20051215
  9. CALCIUM LEVOFOLINATE [Suspect]
     Dates: start: 20051201, end: 20051201
  10. ELPLAT [Suspect]
     Indication: COLON CANCER
     Route: 041
     Dates: start: 20050915, end: 20050915
  11. FLUOROURACIL [Concomitant]
     Route: 041
     Dates: start: 20050915, end: 20050916
  12. ELPLAT [Suspect]
     Route: 041
     Dates: start: 20051215, end: 20051215
  13. CALCIUM LEVOFOLINATE [Suspect]
     Dates: start: 20051215, end: 20051215
  14. FLUOROURACIL [Concomitant]
     Indication: COLON CANCER
     Route: 040
     Dates: start: 20050915, end: 20050915

REACTIONS (1)
  - ANGINA PECTORIS [None]
